FAERS Safety Report 24832199 (Version 1)
Quarter: 2025Q1

REPORT INFORMATION
  Report Type: Spontaneous
  Country: CN (occurrence: CN)
  Receive Date: 20250110
  Receipt Date: 20250110
  Transmission Date: 20250409
  Serious: Yes (Other)
  Sender: NOVARTIS
  Company Number: CN-002147023-NVSC2025CN004024

PATIENT

DRUGS (2)
  1. SACUBITRIL\VALSARTAN [Suspect]
     Active Substance: SACUBITRIL\VALSARTAN
     Indication: Cardiac failure chronic
     Dosage: 100 MG, BID (INITIAL DOSE) (100 MG (2 TABLETS)/TIME, 2 TIMES A DAY)
     Route: 048
  2. SACUBITRIL\VALSARTAN [Suspect]
     Active Substance: SACUBITRIL\VALSARTAN
     Dosage: 200 MG, BID (MAINTENANCE DOSE) (DOSE SHOULD BE DOUBLED EVERY 2-4 WEEKS UNTIL REACHING 200 MG (4 TABL
     Route: 048

REACTIONS (1)
  - Ketoacidosis [Unknown]
